FAERS Safety Report 7786964-7 (Version None)
Quarter: 2011Q3

REPORT INFORMATION
  Report Type: 
  Country: None (occurrence: None)
  Receive Date: 20110929
  Receipt Date: 20110928
  Transmission Date: 20111222
  Serious: Yes (Other)
  Sender: FDA-Public Use
  Company Number: FR-PFIZER INC-FR-WYE-G06609310

PATIENT
  Age: 29 Year
  Sex: Female

DRUGS (9)
  1. LEXOMIL [Concomitant]
     Route: 048
  2. MIRTAZAPINE [Suspect]
     Dosage: 2 TABLETS TOTAL DAILY
     Route: 048
     Dates: start: 20100818
  3. IMOVANE [Concomitant]
     Route: 048
  4. TRAZODONE HCL [Suspect]
     Dosage: 225 MG TOTAL DAILY
     Route: 048
     Dates: start: 20100818
  5. MIRTAZAPINE [Suspect]
     Dosage: 2 TABLETS TOTAL DAILY
     Route: 048
     Dates: start: 20100723, end: 20100813
  6. VALIUM [Concomitant]
     Dosage: UNK
     Route: 065
     Dates: start: 20100723
  7. TRAZODONE HCL [Suspect]
     Dosage: 375 MG TOTAL DAILY
     Route: 048
     Dates: start: 20100723, end: 20100813
  8. HYDROXYZINE [Suspect]
     Dosage: 300 MG TOTAL DAILY
     Route: 048
     Dates: start: 20100723, end: 20100813
  9. SERTRALINE [Concomitant]
     Route: 048

REACTIONS (2)
  - DYSARTHRIA [None]
  - APRAXIA [None]
